FAERS Safety Report 13911650 (Version 1)
Quarter: 2017Q3

REPORT INFORMATION
  Report Type: Spontaneous
  Country: US (occurrence: US)
  Receive Date: 20170828
  Receipt Date: 20170828
  Transmission Date: 20171127
  Serious: No
  Sender: FDA-Public Use
  Company Number: US-ROCHE-1144106

PATIENT
  Age: 23 Year
  Sex: Female
  Weight: 61.36 kg

DRUGS (1)
  1. NUTROPIN [Suspect]
     Active Substance: SOMATROPIN
     Indication: HYPOPITUITARISM
     Route: 065
     Dates: start: 19990716

REACTIONS (7)
  - Eye pain [Unknown]
  - Mood altered [Unknown]
  - Headache [Unknown]
  - Eye swelling [Unknown]
  - Depression [Unknown]
  - Stress [Unknown]
  - Contusion [Unknown]

NARRATIVE: CASE EVENT DATE: 20000821
